FAERS Safety Report 16358502 (Version 2)
Quarter: 2019Q3

REPORT INFORMATION
  Report Type: Spontaneous
  Country: US (occurrence: US)
  Receive Date: 20190527
  Receipt Date: 20190709
  Transmission Date: 20191004
  Serious: Yes (Other)
  Sender: FDA-Public Use
  Company Number: US-PFIZER INC-2019220684

PATIENT
  Age: 57 Year
  Sex: Female
  Weight: 66.68 kg

DRUGS (1)
  1. IBUPROFEN. [Suspect]
     Active Substance: IBUPROFEN
     Dosage: UNK

REACTIONS (4)
  - Gastric disorder [Unknown]
  - Weight fluctuation [Unknown]
  - Ulcer haemorrhage [Unknown]
  - Overdose [Unknown]
